FAERS Safety Report 16914765 (Version 1)
Quarter: 2019Q4

REPORT INFORMATION
  Report Type: Spontaneous
  Country: US (occurrence: US)
  Receive Date: 20191014
  Receipt Date: 20191014
  Transmission Date: 20200122
  Serious: Yes (Other)
  Sender: FDA-Public Use
  Company Number: US-AMGEN INC.-USASP2019168363

PATIENT

DRUGS (1)
  1. ERENUMAB [Suspect]
     Active Substance: ERENUMAB
     Indication: MIGRAINE PROPHYLAXIS
     Dosage: UNK
     Route: 065
     Dates: start: 2018

REACTIONS (14)
  - Headache [Unknown]
  - Dizziness [Unknown]
  - Adverse event [Unknown]
  - Muscle spasms [Unknown]
  - Fatigue [Unknown]
  - Mental disorder [Unknown]
  - Constipation [Unknown]
  - Hypersensitivity [Unknown]
  - Injection site pain [Unknown]
  - Infection [Unknown]
  - Arthralgia [Unknown]
  - Drug ineffective [Unknown]
  - Gastrointestinal disorder [Unknown]
  - Injection site reaction [Unknown]
